FAERS Safety Report 9392969 (Version 2)
Quarter: 2013Q3

REPORT INFORMATION
  Report Type: Spontaneous
  Country: US (occurrence: US)
  Receive Date: 20130710
  Receipt Date: 20130725
  Transmission Date: 20140515
  Serious: No
  Sender: FDA-Public Use
  Company Number: US-PFIZER INC-2013201802

PATIENT
  Sex: Female

DRUGS (2)
  1. PRISTIQ [Suspect]
     Dosage: UNK
  2. ARICEPT [Suspect]
     Dosage: UNK

REACTIONS (3)
  - Nervousness [Unknown]
  - Agitation [Unknown]
  - Somnolence [Unknown]
